FAERS Safety Report 6985844-4 (Version None)
Quarter: 2010Q3

REPORT INFORMATION
  Report Type: 
  Country: None (occurrence: None)
  Receive Date: 20100915
  Receipt Date: 20100903
  Transmission Date: 20110219
  Serious: Yes (Death)
  Sender: FDA-Public Use
  Company Number: US-GILEAD-2010-0031669

PATIENT
  Sex: Male

DRUGS (4)
  1. VIREAD [Suspect]
     Indication: HIV INFECTION
     Route: 054
     Dates: end: 20090807
  2. KALETRA [Concomitant]
     Route: 048
     Dates: start: 20060619
  3. EPIVIR [Concomitant]
     Dates: start: 20070801
  4. ZIAGEN [Concomitant]
     Dates: start: 20100808

REACTIONS (1)
  - PREMATURE BABY [None]
